FAERS Safety Report 4999565-0 (Version None)
Quarter: 2006Q2

REPORT INFORMATION
  Report Type: 
  Country: None (occurrence: None)
  Receive Date: 20060511
  Receipt Date: 20060125
  Transmission Date: 20061013
  Serious: Yes (Hospitalization, Other)
  Sender: FDA-Public Use
  Company Number: GB-MERCK-0602GBR00022

PATIENT
  Age: 75 Year
  Sex: Male
  Weight: 151 kg

DRUGS (9)
  1. VIOXX [Suspect]
     Indication: RHEUMATOID ARTHRITIS
     Route: 048
     Dates: start: 20010226, end: 20010909
  2. VIOXX [Suspect]
     Route: 048
     Dates: start: 20010910, end: 20040821
  3. BENDROFLUMETHIAZIDE [Concomitant]
     Route: 065
  4. ELAVIL [Concomitant]
     Route: 065
  5. DIHYDROCODEINE [Concomitant]
     Route: 065
  6. ACETAMINOPHEN [Concomitant]
     Route: 065
  7. ZOCOR [Concomitant]
     Route: 065
  8. ATENOLOL [Concomitant]
     Route: 065
  9. CLOPIDOGREL BISULFATE [Concomitant]
     Route: 065

REACTIONS (6)
  - DEAFNESS [None]
  - DIVERTICULUM [None]
  - DYSPEPSIA [None]
  - MYOCARDIAL INFARCTION [None]
  - MYOCARDIAL ISCHAEMIA [None]
  - REFLUX OESOPHAGITIS [None]
